FAERS Safety Report 8351387-9 (Version None)
Quarter: 2012Q2

REPORT INFORMATION
  Report Type: 
  Country: None (occurrence: None)
  Receive Date: 20120510
  Receipt Date: 20120501
  Transmission Date: 20120825
  Serious: Yes (Other)
  Sender: FDA-Public Use
  Company Number: IR-MERCK-1205USA00371

PATIENT
  Age: 56 Year
  Sex: Male

DRUGS (2)
  1. MOXIFLOXACIN HYDROCHLORIDE [Concomitant]
     Indication: KERATITIS
     Route: 061
  2. AZASITE [Suspect]
     Indication: KERATITIS
     Route: 048

REACTIONS (2)
  - DRUG INEFFECTIVE [None]
  - KERATITIS [None]
